FAERS Safety Report 19511617 (Version 3)
Quarter: 2021Q3

REPORT INFORMATION
  Report Type: Report from Study
  Country: JP (occurrence: JP)
  Receive Date: 20210709
  Receipt Date: 20210924
  Transmission Date: 20211014
  Serious: Yes (Hospitalization)
  Sender: FDA-Public Use
  Company Number: JP-BAYER-2021-170890

PATIENT
  Age: 69 Year
  Sex: Female

DRUGS (3)
  1. ADEMPAS [Suspect]
     Active Substance: RIOCIGUAT
     Indication: PULMONARY ARTERIAL HYPERTENSION
     Dosage: UNK
     Dates: start: 20180719
  2. SELEXIPAG [Concomitant]
     Active Substance: SELEXIPAG
     Dosage: UNK
  3. MACITENTAN [Concomitant]
     Active Substance: MACITENTAN

REACTIONS (2)
  - Pulmonary arterial wedge pressure increased [None]
  - Respiratory failure [None]
